FAERS Safety Report 5742550-1 (Version None)
Quarter: 2008Q2

REPORT INFORMATION
  Report Type: 
  Country: None (occurrence: None)
  Receive Date: 20080515
  Receipt Date: 20080416
  Transmission Date: 20081010
  Serious: Yes (Other)
  Sender: FDA-Public Use
  Company Number: 003#2#2008-00061

PATIENT
  Sex: Male

DRUGS (1)
  1. NEUPRO [Suspect]
     Dosage: 8 MG/24H (8 MG/24H 1 IN 1 DAY(S))    TRANSDERMAL
     Route: 062
     Dates: start: 20080411

REACTIONS (2)
  - ROAD TRAFFIC ACCIDENT [None]
  - SLEEP ATTACKS [None]
